FAERS Safety Report 5977934-X (Version None)
Quarter: 2008Q4

REPORT INFORMATION
  Report Type: 
  Country: None (occurrence: None)
  Receive Date: 20081203
  Receipt Date: 20081201
  Transmission Date: 20090506
  Serious: Yes (Other)
  Sender: FDA-Public Use
  Company Number: DE-ROXANE LABORATORIES, INC.-2008-RO-00323RO

PATIENT
  Age: 38 Year
  Sex: Female

DRUGS (13)
  1. MORPHINE [Suspect]
     Indication: ANALGESIC THERAPY
  2. MORPHINE [Suspect]
  3. IMIPENEM AND CILASTATIN SODIUM [Concomitant]
     Indication: SEPSIS
  4. NOREPINEPHRINE [Concomitant]
  5. PROPOFOL [Concomitant]
     Indication: SEDATION
  6. SUFENTANIL CITRATE [Concomitant]
     Indication: SEDATION
  7. SUFENTANIL CITRATE [Concomitant]
     Indication: ANALGESIA
  8. VANCOMYCIN [Concomitant]
     Indication: ENTEROBACTER INFECTION
  9. VANCOMYCIN [Concomitant]
     Indication: CANDIDIASIS
  10. CASPOFUNGIN [Concomitant]
     Indication: ENTEROBACTER INFECTION
  11. CASPOFUNGIN [Concomitant]
     Indication: CANDIDIASIS
  12. MIDAZOLAM HCL [Concomitant]
     Indication: ANALGESIC THERAPY
  13. NITRIC OXIDE [Concomitant]
     Indication: DYSPNOEA
     Route: 055

REACTIONS (1)
  - LUNG INJURY [None]
